FAERS Safety Report 25372235 (Version 1)
Quarter: 2025Q2

REPORT INFORMATION
  Report Type: Spontaneous
  Country: NL (occurrence: NL)
  Receive Date: 20250529
  Receipt Date: 20250529
  Transmission Date: 20250716
  Serious: Yes (Other)
  Sender: Unknown Manufacturer
  Company Number: None

PATIENT

DRUGS (1)
  1. METOPROLOL SUCCINATE [Suspect]
     Active Substance: METOPROLOL SUCCINATE
     Indication: Atrial fibrillation
     Dosage: 50 MILLIGRAM, Q12H (1 PIECE 2 TIMES A DAY)
     Route: 048
     Dates: start: 20250424

REACTIONS (1)
  - Hallucination, visual [Recovering/Resolving]
